FAERS Safety Report 6480575-1 (Version None)
Quarter: 2009Q4

REPORT INFORMATION
  Report Type: 
  Country: None (occurrence: None)
  Receive Date: 20091203
  Receipt Date: 20091118
  Transmission Date: 20100525
  Serious: Yes (Hospitalization)
  Sender: FDA-Public Use
  Company Number: 2008AL010612

PATIENT
  Age: 46 Year
  Sex: Male

DRUGS (55)
  1. MINOXIDIL EXTRA STRENGTH (FOR MEN) [Suspect]
     Indication: ALOPECIA
     Dosage: BID; TOP
     Route: 061
     Dates: start: 20080701, end: 20080708
  2. ZOLOFT [Concomitant]
  3. LITHIUM CARBONATE [Concomitant]
  4. DEPAKOTE [Concomitant]
  5. NARCOTIC PAIN RELIEVERS [Concomitant]
  6. HYDROMORPHONE [Concomitant]
  7. LIPODERM 5% PATCH [Concomitant]
  8. CLOTRIMAZOLE BETHAMETHAZOLE DIPROPIONATE CREAM [Concomitant]
  9. MORPHINE SULFATE [Concomitant]
  10. FLOMAX [Concomitant]
  11. MORPHINE SULFATE [Concomitant]
  12. TRAMADOL HCL [Concomitant]
  13. COLCHICINE [Concomitant]
  14. MORPHINE SULFATE [Concomitant]
  15. OXYCODONE [Concomitant]
  16. OMEPRAZOLE [Concomitant]
  17. KETOROLAC TROMETHAMINE [Concomitant]
  18. PROMETHAZINE [Concomitant]
  19. NAPROXEN [Concomitant]
  20. PROMETHAZINE [Concomitant]
  21. HYDROCODONE BITARTRATE AND ACETAMINOPHEN [Concomitant]
  22. PYRIDOSTIGMINE HCL [Concomitant]
  23. ROPINIROLE [Concomitant]
  24. ZYPREXA [Concomitant]
  25. AQUAPHOR OINTMENT [Concomitant]
  26. DOCUSATE SODIUM [Concomitant]
  27. IMIPRAMINE [Concomitant]
  28. LITHIUM CARBONATE [Concomitant]
  29. METOPROLOL SUCCINATE EXTENDED RELEASE [Concomitant]
  30. PANTOPRAZOLE SODIUM DR [Concomitant]
  31. METHADONE HYDROCHLORIDE [Concomitant]
  32. CIPROFLOXACIN [Concomitant]
  33. OXYBUTYNIN CHLORIDE [Concomitant]
  34. CEPHALEXLEXIN [Concomitant]
  35. METRONIDAZOLE [Concomitant]
  36. FUROSEMIDE [Concomitant]
  37. POTASSIUM CHLORIDE [Concomitant]
  38. TERAZOSIN HCL [Concomitant]
  39. FUROSEMIDE [Concomitant]
  40. CYCLOBENZAPRINE [Concomitant]
  41. MUPIROCIN [Concomitant]
  42. IBUPROFEN [Concomitant]
  43. AMOXICILLIN AND CLAVULANATE POTASSIUM [Concomitant]
  44. PROCHLORPERAZINE [Concomitant]
  45. GEODON [Concomitant]
  46. CLOBETASOL PROPIONATE [Concomitant]
  47. FLUCONAZOLE [Concomitant]
  48. AZITHROMYCIN [Concomitant]
  49. DILTIAZEM [Concomitant]
  50. TRILEPTAL [Concomitant]
  51. ROZEREM [Concomitant]
  52. LORAZEPAM [Concomitant]
  53. ALPRAZOLAM [Concomitant]
  54. TETRACYCLINE [Concomitant]
  55. KEFLEX [Concomitant]

REACTIONS (45)
  - AMNESIA [None]
  - ANXIETY [None]
  - ARTHRALGIA [None]
  - ASTHENIA [None]
  - BACK PAIN [None]
  - BIPOLAR DISORDER [None]
  - BLOOD PRESSURE INCREASED [None]
  - CELLULITIS [None]
  - CYSTITIS [None]
  - DECREASED APPETITE [None]
  - DEPRESSION [None]
  - DYSURIA [None]
  - FATIGUE [None]
  - FRUSTRATION [None]
  - GAIT DISTURBANCE [None]
  - GASTRIC POLYPS [None]
  - GENITAL PAIN [None]
  - GENITAL RASH [None]
  - GROIN PAIN [None]
  - HAEMATEMESIS [None]
  - HALLUCINATION [None]
  - HYPOAESTHESIA [None]
  - INSOMNIA [None]
  - INTERVERTEBRAL DISC DEGENERATION [None]
  - LOCAL SWELLING [None]
  - LYMPHADENOPATHY [None]
  - LYMPHOEDEMA [None]
  - MIGRAINE [None]
  - MYOCARDIAL INFARCTION [None]
  - NAUSEA [None]
  - OEDEMA PERIPHERAL [None]
  - PAIN [None]
  - PAIN IN EXTREMITY [None]
  - PARAESTHESIA [None]
  - PILONIDAL CYST [None]
  - RESIDUAL URINE [None]
  - SCIATICA [None]
  - SCROTAL DISORDER [None]
  - SUICIDAL IDEATION [None]
  - SUICIDE ATTEMPT [None]
  - TENDERNESS [None]
  - TINEA CRURIS [None]
  - TONGUE DISORDER [None]
  - URINARY RETENTION [None]
  - WEIGHT BEARING DIFFICULTY [None]
